FAERS Safety Report 18291849 (Version 2)
Quarter: 2021Q3

REPORT INFORMATION
  Report Type: Report from Study
  Country: CA (occurrence: CA)
  Receive Date: 20200921
  Receipt Date: 20210716
  Transmission Date: 20211014
  Serious: No
  Sender: FDA-Public Use
  Company Number: CA-JNJFOC-20191113069

PATIENT
  Age: 14 Year
  Sex: Male
  Weight: 102.15 kg

DRUGS (2)
  1. STELARA [Suspect]
     Active Substance: USTEKINUMAB
     Indication: PSORIASIS
     Route: 058
     Dates: start: 20191108
  2. STELARA [Suspect]
     Active Substance: USTEKINUMAB
     Dosage: PATIENTS REINDUCTION WAS 90MG W0,W4,W16 THEN EVERY 12
     Route: 058

REACTIONS (3)
  - Product use issue [Unknown]
  - Behaviour disorder [Not Recovered/Not Resolved]
  - Off label use [Unknown]
